FAERS Safety Report 16566709 (Version 3)
Quarter: 2020Q4

REPORT INFORMATION
  Report Type: Spontaneous
  Country: US (occurrence: US)
  Receive Date: 20190712
  Receipt Date: 20201106
  Transmission Date: 20210113
  Serious: Yes (Hospitalization, Other)
  Sender: FDA-Public Use
  Company Number: US-JAZZ-JPI-P-026497

PATIENT
  Age: 41 Year
  Sex: Male
  Weight: 102.04 kg

DRUGS (2)
  1. XYREM [Suspect]
     Active Substance: SODIUM OXYBATE
     Indication: NARCOLEPSY
     Dosage: 3 G, BID
     Route: 048
     Dates: start: 20110830
  2. XYREM [Suspect]
     Active Substance: SODIUM OXYBATE
     Dosage: 4.5 G, BID
     Route: 048
     Dates: start: 20120725

REACTIONS (12)
  - Self-injurious ideation [Unknown]
  - Delusion [Unknown]
  - Ulcer [Unknown]
  - Intentional product misuse [Unknown]
  - Bipolar disorder [Unknown]
  - Anxiety [Not Recovered/Not Resolved]
  - Condition aggravated [Recovering/Resolving]
  - Attention deficit hyperactivity disorder [Not Recovered/Not Resolved]
  - Precancerous cells present [Unknown]
  - Disturbance in attention [Unknown]
  - Abnormal behaviour [Unknown]
  - Insomnia [Unknown]

NARRATIVE: CASE EVENT DATE: 2012
